FAERS Safety Report 21490705 (Version 2)
Quarter: 2022Q4

REPORT INFORMATION
  Report Type: Report from Study
  Country: US (occurrence: US)
  Receive Date: 20221021
  Receipt Date: 20221118
  Transmission Date: 20230112
  Serious: Yes (Other)
  Sender: FDA-Public Use
  Company Number: US-TAKEDA-2020TUS053189

PATIENT
  Sex: Female

DRUGS (2)
  1. HUMAN IMMUNOGLOBULIN G [Suspect]
     Active Substance: HUMAN IMMUNOGLOBULIN G
     Indication: Primary immunodeficiency syndrome
     Dosage: UNK
     Route: 042
  2. COVID-19 VACCINE NOS [Suspect]
     Active Substance: COVID-19 VACCINE NOS
     Indication: COVID-19 immunisation
     Dosage: UNK
     Route: 065

REACTIONS (21)
  - Mast cell activation syndrome [Unknown]
  - Blood immunoglobulin G increased [Unknown]
  - Lung disorder [Unknown]
  - Viral infection [Recovering/Resolving]
  - Dysphonia [Unknown]
  - Gastric disorder [Recovering/Resolving]
  - Cluster headache [Unknown]
  - Sinusitis [Not Recovered/Not Resolved]
  - Respiratory tract infection [Unknown]
  - Injection site pruritus [Unknown]
  - Fatigue [Unknown]
  - Headache [Not Recovered/Not Resolved]
  - Pruritus [Unknown]
  - Cough [Unknown]
  - Feeling abnormal [Unknown]
  - Injection site swelling [Unknown]
  - Injection site pain [Unknown]
  - Muscular weakness [Unknown]
  - Asthma [Unknown]
  - Inappropriate schedule of product administration [Unknown]
  - Insurance issue [Unknown]
